FAERS Safety Report 13380892 (Version 1)
Quarter: 2017Q1

REPORT INFORMATION
  Report Type: Spontaneous
  Country: JP (occurrence: JP)
  Receive Date: 20170329
  Receipt Date: 20170329
  Transmission Date: 20170429
  Serious: Yes (Life-Threatening)
  Sender: FDA-Public Use
  Company Number: JP-ASTRAZENECA-2017SE32128

PATIENT
  Age: 38 Year
  Sex: Female

DRUGS (1)
  1. SEROQUEL [Suspect]
     Active Substance: QUETIAPINE FUMARATE
     Indication: PRODUCT USED FOR UNKNOWN INDICATION
     Dosage: 275 MILLIGRAMS, ONCE DAILY
     Route: 048
     Dates: start: 20170321, end: 20170321

REACTIONS (5)
  - Somnolence [Unknown]
  - Suicide attempt [Unknown]
  - Dysphoria [Unknown]
  - Intentional overdose [Unknown]
  - Chills [Unknown]

NARRATIVE: CASE EVENT DATE: 20170321
